FAERS Safety Report 7427182-1 (Version None)
Quarter: 2011Q2

REPORT INFORMATION
  Report Type: 
  Country: None (occurrence: None)
  Receive Date: 20110420
  Receipt Date: 20110408
  Transmission Date: 20111010
  Serious: Yes (Hospitalization)
  Sender: FDA-Public Use
  Company Number: CA-JNJFOC-20110404539

PATIENT
  Sex: Male
  Weight: 75.5 kg

DRUGS (5)
  1. ARTHROTEC [Concomitant]
  2. REMICADE [Suspect]
     Indication: RHEUMATOID ARTHRITIS
     Route: 042
  3. PRAVACHOL [Concomitant]
  4. ARAVA [Concomitant]
  5. SYNTHROID [Concomitant]

REACTIONS (1)
  - RENAL FAILURE [None]
